FAERS Safety Report 18824250 (Version 8)
Quarter: 2021Q4

REPORT INFORMATION
  Report Type: Report from Study
  Country: US (occurrence: US)
  Receive Date: 20210202
  Receipt Date: 20211101
  Transmission Date: 20220303
  Serious: No
  Sender: FDA-Public Use
  Company Number: NVSC2021US023352

PATIENT
  Age: 56 Year
  Sex: Female

DRUGS (3)
  1. COSENTYX [Suspect]
     Active Substance: SECUKINUMAB
     Indication: Psoriasis
     Dosage: UNK
     Route: 058
  2. COSENTYX [Suspect]
     Active Substance: SECUKINUMAB
     Dosage: 300 MG, QW FOR 5 WEEKS AND THEN Q4W
     Route: 058
     Dates: start: 20210107
  3. COSENTYX [Suspect]
     Active Substance: SECUKINUMAB
     Dosage: 300 MG, QW FOR FIVE WEEKS AND THEN Q FOUR
     Route: 058
     Dates: start: 20201028

REACTIONS (5)
  - COVID-19 [Unknown]
  - Macule [Recovering/Resolving]
  - Pruritus [Recovering/Resolving]
  - Psoriasis [Recovering/Resolving]
  - Product dose omission issue [Unknown]

NARRATIVE: CASE EVENT DATE: 20210121
